FAERS Safety Report 8786345 (Version 2)
Quarter: 2012Q4

REPORT INFORMATION
  Report Type: 
  Country: CA (occurrence: CA)
  Receive Date: 20120914
  Receipt Date: 20120928
  Transmission Date: 20130627
  Serious: Yes (Other)
  Sender: FDA-Public Use
  Company Number: CA-PFIZER INC-2012225717

PATIENT
  Age: 56 Year
  Sex: Female

DRUGS (6)
  1. DILANTIN [Suspect]
     Dosage: 300 mg, 1x/day (3 capsules of 100mg at bedtime)
     Dates: start: 20120704
  2. TEGRETOL CR [Suspect]
     Dosage: 400 mg, 2x/day
  3. NEURONTIN [Concomitant]
     Dosage: 400 mg, 3x/day
  4. AMLODIPINE [Concomitant]
     Dosage: 10 mg, UNK
  5. COVERSYL [Concomitant]
     Dosage: 8 mg, UNK
  6. SYMBICORT [Concomitant]
     Dosage: UNK

REACTIONS (2)
  - Convulsion [Not Recovered/Not Resolved]
  - Anticonvulsant drug level below therapeutic [Not Recovered/Not Resolved]
